FAERS Safety Report 5705991-4 (Version None)
Quarter: 2008Q2

REPORT INFORMATION
  Report Type: 
  Country: None (occurrence: None)
  Receive Date: 20080415
  Receipt Date: 20080408
  Transmission Date: 20081010
  Serious: Yes (Death)
  Sender: FDA-Public Use
  Company Number: JP-AVENTIS-200811055JP

PATIENT
  Age: 76 Year
  Sex: Male
  Weight: 42 kg

DRUGS (42)
  1. TAXOTERE [Suspect]
     Indication: NON-SMALL CELL LUNG CANCER
     Route: 041
     Dates: start: 20051214, end: 20060113
  2. DECADRON [Concomitant]
     Indication: PREMEDICATION
     Route: 051
     Dates: start: 20051214, end: 20051214
  3. DECADRON [Concomitant]
     Route: 051
     Dates: start: 20051221, end: 20051221
  4. DECADRON [Concomitant]
     Route: 051
     Dates: start: 20060105, end: 20060105
  5. DECADRON [Concomitant]
     Route: 051
     Dates: start: 20060113, end: 20060113
  6. GASTER D [Concomitant]
     Route: 048
     Dates: end: 20060110
  7. SELBEX [Concomitant]
     Route: 048
     Dates: end: 20060214
  8. SELBEX [Concomitant]
     Route: 048
     Dates: start: 20060216, end: 20060302
  9. METHYCOBAL                         /00056201/ [Concomitant]
     Route: 048
     Dates: end: 20060214
  10. METHYCOBAL                         /00056201/ [Concomitant]
     Route: 048
     Dates: start: 20060216, end: 20060302
  11. BERIZYM                            /00517401/ [Concomitant]
     Dosage: DOSE: 3 CAPSULES/DAY
     Route: 048
     Dates: end: 20051220
  12. NAIXAN                             /00256201/ [Concomitant]
     Route: 048
     Dates: end: 20051220
  13. NAIXAN                             /00256201/ [Concomitant]
     Route: 048
     Dates: start: 20060105, end: 20060214
  14. NAIXAN                             /00256201/ [Concomitant]
     Route: 048
     Dates: start: 20060216, end: 20060302
  15. ALLOID G [Concomitant]
     Route: 048
     Dates: end: 20051220
  16. BIOFERMIN [Concomitant]
     Dosage: DOSE: 3 TABLETS/DAY
     Route: 048
     Dates: end: 20051220
  17. GOSHAJINKIGAN [Concomitant]
     Route: 048
     Dates: end: 20060110
  18. OPIUM ALKALOIDS AND DERIVATIVES [Concomitant]
     Route: 048
     Dates: end: 20060214
  19. OPIUM ALKALOIDS AND DERIVATIVES [Concomitant]
     Route: 048
     Dates: start: 20060216, end: 20060302
  20. MOBIC [Concomitant]
     Route: 048
     Dates: start: 20051221, end: 20060110
  21. LOXONIN                            /00890701/ [Concomitant]
     Dates: start: 20051228
  22. GLUCOSE [Concomitant]
     Route: 051
     Dates: start: 20051214, end: 20051214
  23. GLUCOSE [Concomitant]
     Route: 051
     Dates: start: 20051221, end: 20051221
  24. GLUCOSE [Concomitant]
     Route: 051
     Dates: start: 20051228, end: 20051228
  25. GLUCOSE [Concomitant]
     Route: 051
     Dates: start: 20060105, end: 20060105
  26. GLUCOSE [Concomitant]
     Route: 051
     Dates: start: 20060113, end: 20060113
  27. ISOTONIC SODIUM CHLORIDE SOLUTION [Concomitant]
     Route: 051
     Dates: start: 20051214, end: 20051214
  28. ISOTONIC SODIUM CHLORIDE SOLUTION [Concomitant]
     Route: 051
     Dates: start: 20051221, end: 20051221
  29. ISOTONIC SODIUM CHLORIDE SOLUTION [Concomitant]
     Route: 051
     Dates: start: 20060105, end: 20060105
  30. ISOTONIC SODIUM CHLORIDE SOLUTION [Concomitant]
     Route: 051
     Dates: start: 20060113, end: 20060113
  31. ISOTONIC SODIUM CHLORIDE SOLUTION [Concomitant]
     Route: 051
     Dates: start: 20060201, end: 20060201
  32. ISOTONIC SODIUM CHLORIDE SOLUTION [Concomitant]
     Route: 051
     Dates: start: 20060306, end: 20060317
  33. ISOTONIC SODIUM CHLORIDE SOLUTION [Concomitant]
     Route: 051
     Dates: start: 20060315, end: 20060317
  34. ROCEPHIN                           /00672201/ [Concomitant]
     Route: 051
     Dates: start: 20051228, end: 20051228
  35. HABEKACIN                          /01069401/ [Concomitant]
     Route: 051
     Dates: start: 20051228, end: 20051228
  36. OMEPRAL [Concomitant]
     Route: 048
     Dates: start: 20060111, end: 20060214
  37. OMEPRAL [Concomitant]
     Route: 048
     Dates: start: 20060216, end: 20060309
  38. OMEPRAL [Concomitant]
     Route: 051
     Dates: start: 20060306, end: 20060317
  39. 1% CODEINE PHOSPHATE POWDER [Concomitant]
     Route: 048
     Dates: start: 20060111, end: 20060214
  40. 1% CODEINE PHOSPHATE POWDER [Concomitant]
     Route: 048
     Dates: start: 20060217, end: 20060309
  41. FLOMOX [Concomitant]
     Route: 048
     Dates: start: 20060111, end: 20060117
  42. RADIOTHERAPY [Concomitant]
     Indication: NON-SMALL CELL LUNG CANCER
     Dosage: DOSE: 60 GY/TOTAL
     Dates: start: 20051025, end: 20051207

REACTIONS (1)
  - INTERSTITIAL LUNG DISEASE [None]
